FAERS Safety Report 7512512-2 (Version None)
Quarter: 2011Q2

REPORT INFORMATION
  Report Type: 
  Country: None (occurrence: None)
  Receive Date: 20110525
  Receipt Date: 20110525
  Transmission Date: 20111010
  Serious: Yes (Other)
  Sender: FDA-Public Use
  Company Number: None

PATIENT
  Sex: Female
  Weight: 66.4066 kg

DRUGS (2)
  1. NORTRIPTYLINE HCL [Suspect]
     Indication: NEUROPATHY PERIPHERAL
     Dosage: 25MG PO
     Route: 048
     Dates: start: 20041201, end: 20050101
  2. NORTRIPTYLINE HCL [Suspect]
     Indication: OSTEOARTHRITIS
     Dosage: 25MG PO
     Route: 048
     Dates: start: 20041201, end: 20050101

REACTIONS (1)
  - ABDOMINAL DISCOMFORT [None]
